FAERS Safety Report 18179678 (Version 6)
Quarter: 2020Q4

REPORT INFORMATION
  Report Type: Report from Study
  Country: None (occurrence: US)
  Receive Date: 20200820
  Receipt Date: 20201029
  Transmission Date: 20210113
  Serious: Yes (Life-Threatening, Hospitalization, Other)
  Sender: FDA-Public Use
  Company Number: US-ABBVIE-20K-163-3529711-00

PATIENT
  Age: 75 Year
  Sex: Female
  Weight: 79 kg

DRUGS (7)
  1. CALCITROL [Concomitant]
     Indication: GASTRIC DISORDER
  2. PANTOPRAZOLE [Concomitant]
     Active Substance: PANTOPRAZOLE
     Indication: GASTRIC DISORDER
  3. ELIQUIS [Concomitant]
     Active Substance: APIXABAN
     Indication: THROMBOSIS PROPHYLAXIS
  4. HUMIRA [Suspect]
     Active Substance: ADALIMUMAB
     Indication: HIDRADENITIS
     Route: 058
     Dates: start: 201705
  5. METOPROLOL. [Concomitant]
     Active Substance: METOPROLOL
     Indication: ATRIAL FIBRILLATION
  6. MAGNESIUM OXIDE. [Concomitant]
     Active Substance: MAGNESIUM OXIDE
     Indication: GASTRIC DISORDER
  7. HUMIRA [Suspect]
     Active Substance: ADALIMUMAB
     Route: 058

REACTIONS (20)
  - Haemorrhage [Unknown]
  - Haemoglobin decreased [Unknown]
  - Haematoma [Not Recovered/Not Resolved]
  - Skin haemorrhage [Unknown]
  - Muscular weakness [Unknown]
  - Gait inability [Unknown]
  - Nephrolithiasis [Unknown]
  - Hepatic cirrhosis [Not Recovered/Not Resolved]
  - Fall [Recovered/Resolved]
  - Unevaluable event [Unknown]
  - Fall [Unknown]
  - Dehydration [Unknown]
  - Tremor [Recovered/Resolved]
  - Fall [Unknown]
  - Tremor [Unknown]
  - Cyst [Unknown]
  - Hiatus hernia [Recovered/Resolved]
  - Atrial fibrillation [Recovering/Resolving]
  - Polyp [Unknown]
  - Furuncle [Unknown]

NARRATIVE: CASE EVENT DATE: 20190401
